FAERS Safety Report 21043514 (Version 9)
Quarter: 2025Q3

REPORT INFORMATION
  Report Type: Report from Study
  Country: US (occurrence: US)
  Receive Date: 20220705
  Receipt Date: 20250811
  Transmission Date: 20251021
  Serious: Yes (Other)
  Sender: TAKEDA
  Company Number: US-TAKEDA-2021TUS066052

PATIENT
  Age: 70 Year
  Sex: Female
  Weight: 39.9 kg

DRUGS (37)
  1. HUMAN IMMUNOGLOBULIN G [Suspect]
     Active Substance: HUMAN IMMUNOGLOBULIN G
     Indication: Chronic inflammatory demyelinating polyradiculoneuropathy
  2. HUMAN IMMUNOGLOBULIN G [Suspect]
     Active Substance: HUMAN IMMUNOGLOBULIN G
     Dosage: 50 GRAM, Q6WEEKS
  3. HUMAN IMMUNOGLOBULIN G [Suspect]
     Active Substance: HUMAN IMMUNOGLOBULIN G
  4. DIPHENHYDRAMINE [Concomitant]
     Active Substance: DIPHENHYDRAMINE
  5. DIPHENHYDRAMINE HYDROCHLORIDE [Concomitant]
     Active Substance: DIPHENHYDRAMINE HYDROCHLORIDE
  6. CYANOCOBALAMIN [Concomitant]
     Active Substance: CYANOCOBALAMIN
  7. DRONABINOL [Concomitant]
     Active Substance: DRONABINOL
  8. EPINEPHRINE [Concomitant]
     Active Substance: EPINEPHRINE
  9. SODIUM CHLORIDE [Concomitant]
     Active Substance: SODIUM CHLORIDE
  10. DEXILANT [Concomitant]
     Active Substance: DEXLANSOPRAZOLE
  11. IMITREX [Concomitant]
     Active Substance: SUMATRIPTAN SUCCINATE
  12. AMITRIPTYLINE HYDROCHLORIDE [Concomitant]
     Active Substance: AMITRIPTYLINE HYDROCHLORIDE
  13. ACETAMINOPHEN [Concomitant]
     Active Substance: ACETAMINOPHEN
  14. INGREZZA [Concomitant]
     Active Substance: VALBENAZINE DITOSYLATE
  15. TYLENOL [Concomitant]
     Active Substance: ACETAMINOPHEN
  16. GABAPENTIN [Concomitant]
     Active Substance: GABAPENTIN
  17. XARELTO [Concomitant]
     Active Substance: RIVAROXABAN
  18. HEPARIN [Concomitant]
     Active Substance: HEPARIN SODIUM
  19. ARICEPT [Concomitant]
     Active Substance: DONEPEZIL HYDROCHLORIDE
  20. LIDOCAINE [Concomitant]
     Active Substance: LIDOCAINE
  21. CLONAZEPAM [Concomitant]
     Active Substance: CLONAZEPAM
  22. FYAVOLV [Concomitant]
     Active Substance: ETHINYL ESTRADIOL\NORETHINDRONE ACETATE
  23. CYMBALTA [Concomitant]
     Active Substance: DULOXETINE HYDROCHLORIDE
  24. FOLIC ACID [Concomitant]
     Active Substance: FOLIC ACID
  25. TYLENOL EXTRA STRENGTH [Concomitant]
     Active Substance: ACETAMINOPHEN
  26. EFFEXOR [Concomitant]
     Active Substance: VENLAFAXINE HYDROCHLORIDE
  27. LEXAPRO [Concomitant]
     Active Substance: ESCITALOPRAM OXALATE
  28. VITAMIN C [Concomitant]
     Active Substance: ASCORBIC ACID
  29. MIEBO [Concomitant]
     Active Substance: PERFLUOROHEXYLOCTANE
  30. ERYTHROMYCIN [Concomitant]
     Active Substance: ERYTHROMYCIN
  31. IVIZIA DRY EYE [Concomitant]
     Active Substance: POVIDONE
  32. FLUOROMETHOLONE [Concomitant]
     Active Substance: FLUOROMETHOLONE
  33. IRON [Concomitant]
     Active Substance: IRON
  34. AMITRIPTYLINE [Concomitant]
     Active Substance: AMITRIPTYLINE
  35. ALBUTEROL SULFATE [Concomitant]
     Active Substance: ALBUTEROL SULFATE
  36. MELATONIN [Concomitant]
     Active Substance: MELATONIN
  37. ATROPINE SULFATE [Concomitant]
     Active Substance: ATROPINE SULFATE

REACTIONS (16)
  - Anastomotic ulcer [Unknown]
  - Rectal haemorrhage [Unknown]
  - Hip fracture [Unknown]
  - Bedridden [Unknown]
  - Nipple exudate bloody [Unknown]
  - Breast mass [Unknown]
  - Urinary tract infection [Unknown]
  - Ligament sprain [Unknown]
  - Neck pain [Unknown]
  - Skin abrasion [Unknown]
  - Fall [Unknown]
  - Weight decreased [Unknown]
  - Gait inability [Unknown]
  - Arthralgia [Unknown]
  - Oedema [Unknown]
  - Pain in extremity [Unknown]

NARRATIVE: CASE EVENT DATE: 20220710
